FAERS Safety Report 15182689 (Version 2)
Quarter: 2018Q3

REPORT INFORMATION
  Report Type: Report from Study
  Country: US (occurrence: US)
  Receive Date: 20180723
  Receipt Date: 20180821
  Transmission Date: 20181010
  Serious: No
  Sender: FDA-Public Use
  Company Number: US-HORIZON-PEN-0698-2018

PATIENT
  Age: 53 Year
  Sex: Female

DRUGS (7)
  1. MAGNESIUM [Concomitant]
     Active Substance: MAGNESIUM
  2. PREDNISONE. [Concomitant]
     Active Substance: PREDNISONE
  3. FLEXERIL [Concomitant]
     Active Substance: CYCLOBENZAPRINE HYDROCHLORIDE
  4. PROGRAF [Concomitant]
     Active Substance: TACROLIMUS\TACROLIMUS ANHYDROUS
  5. CARBIDOPA/LEVODOPA [Concomitant]
     Active Substance: CARBIDOPA\LEVODOPA
  6. ZOLOFT [Concomitant]
     Active Substance: SERTRALINE HYDROCHLORIDE
  7. PENNSAID [Suspect]
     Active Substance: DICLOFENAC SODIUM
     Indication: ARTHRALGIA
     Dosage: 2 PUMPS BID

REACTIONS (3)
  - Palpitations [Recovered/Resolved]
  - Feeling abnormal [Recovered/Resolved]
  - Headache [Recovered/Resolved]
